FAERS Safety Report 4492563-5 (Version None)
Quarter: 2004Q4

REPORT INFORMATION
  Report Type: 
  Country: None (occurrence: None)
  Receive Date: 20041102
  Receipt Date: 20041102
  Transmission Date: 20050328
  Serious: Yes (Other)
  Sender: FDA-Public Use
  Company Number: None

PATIENT
  Age: 54 Year
  Sex: Male

DRUGS (2)
  1. FLONASE [Suspect]
     Indication: MULTIPLE ALLERGIES
     Dosage: 2 SPRAYS  EACH NOSTRIL DAILY
     Route: 045
     Dates: start: 20040814, end: 20041029
  2. FLONASE [Suspect]

REACTIONS (4)
  - CONDITION AGGRAVATED [None]
  - DEVICE FAILURE [None]
  - MULTIPLE ALLERGIES [None]
  - PHARMACEUTICAL PRODUCT COMPLAINT [None]
